FAERS Safety Report 6750035-9 (Version None)
Quarter: 2010Q2

REPORT INFORMATION
  Report Type: 
  Country: None (occurrence: None)
  Receive Date: 20100601
  Receipt Date: 20100520
  Transmission Date: 20101027
  Serious: Yes (Hospitalization, Other)
  Sender: FDA-Public Use
  Company Number: JP-PFIZER INC-2010019500

PATIENT
  Age: 70 Year
  Sex: Female
  Weight: 48 kg

DRUGS (7)
  1. RIFABUTIN [Suspect]
     Indication: MYCOBACTERIUM AVIUM COMPLEX INFECTION
     Dosage: 150 MG, 1X/DAY
     Route: 048
     Dates: start: 20090527, end: 20090615
  2. RIFABUTIN [Suspect]
     Dosage: UNK
     Route: 048
     Dates: start: 20090619, end: 20090702
  3. CLARITH [Concomitant]
     Dosage: 400 MG, 2X/DAY
     Route: 048
  4. CRAVIT [Concomitant]
     Indication: MYCOBACTERIUM AVIUM COMPLEX INFECTION
     Dosage: 200 MG, 2X/DAY
     Route: 048
     Dates: start: 20090527, end: 20090615
  5. LIPIDIL [Concomitant]
     Dosage: UNK
     Route: 048
  6. DEPAS [Concomitant]
     Route: 048
  7. EBUTOL [Concomitant]
     Indication: MYCOBACTERIUM AVIUM COMPLEX INFECTION
     Route: 048
     Dates: start: 20090618, end: 20090625

REACTIONS (3)
  - ANXIETY [None]
  - DECREASED APPETITE [None]
  - MALAISE [None]
